FAERS Safety Report 7966457-4 (Version None)
Quarter: 2011Q4

REPORT INFORMATION
  Report Type: 
  Country: None (occurrence: None)
  Receive Date: 20111208
  Receipt Date: 20111206
  Transmission Date: 20120403
  Serious: Yes (Hospitalization, Other)
  Sender: FDA-Public Use
  Company Number: US-ROCHE-717505

PATIENT
  Sex: Male
  Weight: 77.1 kg

DRUGS (3)
  1. ACCUTANE [Suspect]
     Indication: ACNE
     Dosage: FOR 5 MONTHS
     Route: 065
  2. ACCUTANE [Suspect]
     Route: 065
     Dates: start: 19951001, end: 19960201
  3. ACCUTANE [Suspect]
     Route: 065
     Dates: start: 19960801, end: 19961125

REACTIONS (13)
  - SUICIDE ATTEMPT [None]
  - BRONCHITIS [None]
  - INFLAMMATORY BOWEL DISEASE [None]
  - CROHN'S DISEASE [None]
  - COLITIS ULCERATIVE [None]
  - POUCHITIS [None]
  - DEPRESSION [None]
  - SUICIDAL IDEATION [None]
  - ORAL HERPES [None]
  - ANAL FISTULA [None]
  - INTESTINAL OBSTRUCTION [None]
  - RECTAL ABSCESS [None]
  - AFFECTIVE DISORDER [None]
